FAERS Safety Report 11786733 (Version 1)
Quarter: 2015Q4

REPORT INFORMATION
  Report Type: Spontaneous
  Country: US (occurrence: US)
  Receive Date: 20151130
  Receipt Date: 20151130
  Transmission Date: 20160305
  Serious: Yes (Other)
  Sender: FDA-Public Use
  Company Number: US-JNJFOC-20151124202

PATIENT
  Sex: Female
  Weight: 90.72 kg

DRUGS (2)
  1. PROZAC [Concomitant]
     Active Substance: FLUOXETINE HYDROCHLORIDE
     Indication: PRODUCT USED FOR UNKNOWN INDICATION
     Route: 065
  2. CONCERTA [Suspect]
     Active Substance: METHYLPHENIDATE HYDROCHLORIDE
     Indication: ATTENTION DEFICIT/HYPERACTIVITY DISORDER
     Dosage: 5 DAYS A WEEK.
     Route: 048

REACTIONS (3)
  - Obesity [Not Recovered/Not Resolved]
  - Hypersomnia [Not Recovered/Not Resolved]
  - Activities of daily living impaired [Not Recovered/Not Resolved]
